FAERS Safety Report 20235618 (Version 1)
Quarter: 2021Q4

REPORT INFORMATION
  Report Type: Spontaneous
  Country: GB (occurrence: GB)
  Receive Date: 20211228
  Receipt Date: 20211228
  Transmission Date: 20220303
  Serious: Yes (Other)
  Sender: FDA-Public Use
  Company Number: GB-MHRA-TPP6729677C8721257YC1639491245263

PATIENT
  Age: 64 Year
  Sex: Female
  Weight: 46 kg

DRUGS (9)
  1. SIMVASTATIN [Suspect]
     Active Substance: SIMVASTATIN
     Indication: Product used for unknown indication
     Dosage: 20 MILLIGRAM
     Route: 065
     Dates: start: 20211214
  2. APIXABAN [Concomitant]
     Active Substance: APIXABAN
     Indication: Product used for unknown indication
     Dosage: UNK (ONE TABLET  TO BE TAKEN TWICE A DAY TO THIN BLO...)
     Route: 065
     Dates: start: 20211214
  3. CHOLECALCIFEROL [Concomitant]
     Active Substance: CHOLECALCIFEROL
     Indication: Product used for unknown indication
     Dosage: 1 DOSAGE FORM (TWICE A MONTH)
     Route: 065
     Dates: start: 20211214
  4. FENOFIBRATE [Concomitant]
     Active Substance: FENOFIBRATE
     Indication: Blood cholesterol
     Dates: start: 20211214
  5. FOLIC ACID [Concomitant]
     Active Substance: FOLIC ACID
     Indication: Product used for unknown indication
     Dosage: 1 DOSAGE FORM (TWICE A WEEK)
     Route: 065
     Dates: start: 20211214
  6. POTASSIUM BICARBONATE\SODIUM ALGINATE [Concomitant]
     Active Substance: POTASSIUM BICARBONATE\SODIUM ALGINATE
     Indication: Product used for unknown indication
     Dosage: UNK (5ML - 10ML 4 TIMES/DAY)
     Route: 065
     Dates: start: 20211214
  7. LEVOTHYROXINE [Concomitant]
     Active Substance: LEVOTHYROXINE
     Indication: Product used for unknown indication
     Dosage: UNK (ONE TABLET TO BE TAKEN ONCE A DAY IN THE MORNIN...)
     Route: 065
     Dates: start: 20211214
  8. OMEPRAZOLE [Concomitant]
     Active Substance: OMEPRAZOLE
     Indication: Product used for unknown indication
     Dosage: UNK (ONE CAPSULE TO BE TAKEN ONCE A DAY TO REDUCE ST...)
     Route: 065
     Dates: start: 20211214
  9. SOLIFENACIN [Concomitant]
     Active Substance: SOLIFENACIN
     Indication: Product used for unknown indication
     Dosage: UNK (ONE TABLET TO BE TAKEN DAILY TO TREAT BLADDER S...)
     Route: 065
     Dates: start: 20211214

REACTIONS (1)
  - Palpitations [Recovered/Resolved]

NARRATIVE: CASE EVENT DATE: 20211214
